FAERS Safety Report 24594458 (Version 1)
Quarter: 2024Q4

REPORT INFORMATION
  Report Type: Spontaneous
  Country: CN (occurrence: CN)
  Receive Date: 20241108
  Receipt Date: 20241108
  Transmission Date: 20250115
  Serious: Yes (Life-Threatening, Hospitalization)
  Sender: BAYER HEALTHCARE PHARMACEUTICALS INC.
  Company Number: CN-BAYER-2024A157810

PATIENT
  Age: 69 Year
  Sex: Male
  Weight: 40 kg

DRUGS (1)
  1. STIVARGA [Suspect]
     Active Substance: REGORAFENIB MONOHYDRATE
     Indication: Rectal cancer
     Dosage: 120 MG, QD
     Route: 048
     Dates: start: 20240927, end: 20241012

REACTIONS (11)
  - Palmar-plantar erythrodysaesthesia syndrome [Recovering/Resolving]
  - Mouth ulceration [Recovering/Resolving]
  - Platelet count decreased [Not Recovered/Not Resolved]
  - Lower gastrointestinal haemorrhage [Recovering/Resolving]
  - Haematochezia [Recovered/Resolved]
  - Loss of consciousness [Recovering/Resolving]
  - Tumour haemorrhage [Recovering/Resolving]
  - Tumour rupture [Recovering/Resolving]
  - Haemoglobin decreased [Recovering/Resolving]
  - Prescribed underdose [None]
  - Underdose [None]

NARRATIVE: CASE EVENT DATE: 20240927
